FAERS Safety Report 17546895 (Version 1)
Quarter: 2020Q1

REPORT INFORMATION
  Report Type: Report from Study
  Country: US (occurrence: US)
  Receive Date: 20200316
  Receipt Date: 20200316
  Transmission Date: 20200409
  Serious: Yes (Other)
  Sender: FDA-Public Use
  Company Number: US-CHIESI USA, INC.-US-2020CHI000148

PATIENT

DRUGS (5)
  1. KENGREAL [Suspect]
     Active Substance: CANGRELOR
     Indication: PERCUTANEOUS CORONARY INTERVENTION
     Dosage: 10 ?G/KG, UNK
     Route: 065
     Dates: start: 20190313, end: 20190313
  2. TICAGRELOR. [Suspect]
     Active Substance: TICAGRELOR
     Indication: PRODUCT USED FOR UNKNOWN INDICATION
     Dosage: 180 MG, UNK
     Route: 065
     Dates: start: 20190314
  3. TICAGRELOR. [Suspect]
     Active Substance: TICAGRELOR
     Dosage: 90 MG, BID
     Route: 065
     Dates: start: 20190314
  4. STATIN                             /00036501/ [Concomitant]
     Active Substance: NYSTATIN
     Indication: PRODUCT USED FOR UNKNOWN INDICATION
     Dosage: UNK
     Route: 065
  5. KENGREAL [Suspect]
     Active Substance: CANGRELOR
     Dosage: 3.5 ?G/KG/MIN, UNK
     Route: 065
     Dates: start: 20190313, end: 20190313

REACTIONS (6)
  - Vascular access site haemorrhage [Unknown]
  - Haemoglobin decreased [Unknown]
  - Incorrect drug administration rate [Unknown]
  - Packed red blood cell transfusion [Unknown]
  - Cerebrovascular accident [Unknown]
  - Incorrect dosage administered [Unknown]

NARRATIVE: CASE EVENT DATE: 20190313
